FAERS Safety Report 19126641 (Version 1)
Quarter: 2021Q2

REPORT INFORMATION
  Report Type: Spontaneous
  Country: AR (occurrence: AR)
  Receive Date: 20210412
  Receipt Date: 20210412
  Transmission Date: 20210717
  Serious: Yes (Other)
  Sender: FDA-Public Use
  Company Number: AR-PFIZER INC-2021382927

PATIENT
  Age: 47 Year
  Sex: Female

DRUGS (1)
  1. XELJANZ [Suspect]
     Active Substance: TOFACITINIB CITRATE
     Indication: RHEUMATOID ARTHRITIS
     Dosage: 5 MG, 2X/DAY
     Dates: start: 20170721

REACTIONS (4)
  - Lacrimal disorder [Unknown]
  - Sjogren^s syndrome [Unknown]
  - Aptyalism [Unknown]
  - Tooth loss [Unknown]

NARRATIVE: CASE EVENT DATE: 2020
